FAERS Safety Report 5998177-X (Version None)
Quarter: 2008Q4

REPORT INFORMATION
  Report Type: 
  Country: None (occurrence: None)
  Receive Date: 20081213
  Receipt Date: 20080624
  Transmission Date: 20090506
  Serious: No
  Sender: FDA-Public Use
  Company Number: US-AMGEN-KDL263875

PATIENT
  Sex: Female

DRUGS (5)
  1. ENBREL [Suspect]
     Indication: PSORIATIC ARTHROPATHY
     Route: 058
     Dates: start: 20080103, end: 20080401
  2. ENBREL [Suspect]
     Indication: PSORIASIS
  3. SYNTHROID [Concomitant]
  4. EFFEXOR [Concomitant]
  5. RELAFEN [Concomitant]

REACTIONS (5)
  - ARTHRALGIA [None]
  - INJECTION SITE IRRITATION [None]
  - INJECTION SITE PAIN [None]
  - JOINT SWELLING [None]
  - MALAISE [None]
